FAERS Safety Report 8557054 (Version 3)
Quarter: 2012Q4

REPORT INFORMATION
  Report Type: 
  Country: US (occurrence: US)
  Receive Date: 20120511
  Receipt Date: 20120824
  Transmission Date: 20130627
  Serious: No
  Sender: FDA-Public Use
  Company Number: US-ELI_LILLY_AND_COMPANY-US201205001016

PATIENT
  Sex: Female
  Weight: 62.59 kg

DRUGS (4)
  1. FORTEO [Suspect]
     Indication: OSTEOPOROSIS
     Dosage: 20 ug, qd
     Route: 058
     Dates: start: 201202, end: 20120401
  2. OSCAL [Concomitant]
     Dosage: UNK UNK, bid
  3. TUMS [Concomitant]
     Dosage: UNK, prn
  4. VIT D [Concomitant]
     Dosage: UNK, bid

REACTIONS (6)
  - Wrist fracture [Unknown]
  - Rhinorrhoea [Unknown]
  - Ocular hyperaemia [Unknown]
  - Dysgeusia [Unknown]
  - Balance disorder [Unknown]
  - Fall [Unknown]
